FAERS Safety Report 10078815 (Version 2)
Quarter: 2014Q2

REPORT INFORMATION
  Report Type: Spontaneous
  Country: AR (occurrence: AR)
  Receive Date: 20140415
  Receipt Date: 20140415
  Transmission Date: 20141212
  Serious: Yes (Other)
  Sender: FDA-Public Use
  Company Number: AR-ABBVIE-13P-007-1050679-00

PATIENT
  Age: 39 Year
  Sex: Male

DRUGS (7)
  1. RITONAVIR [Suspect]
     Indication: ANTIRETROVIRAL THERAPY
  2. ERGOTAMINE TARTRATE [Interacting]
     Indication: HEADACHE
  3. ERGOTAMINE TARTRATE [Interacting]
     Indication: NAUSEA
  4. ERGOTAMINE TARTRATE [Interacting]
     Indication: VOMITING
  5. PROPRANOLOL [Suspect]
     Indication: PROPHYLAXIS
  6. LAMIVUDINE [Concomitant]
     Indication: HIV INFECTION
  7. DIDANOSINE [Concomitant]
     Indication: HIV INFECTION

REACTIONS (3)
  - Ergot poisoning [Recovered/Resolved]
  - Splenic infarction [Recovered/Resolved]
  - Drug interaction [Recovered/Resolved]
